FAERS Safety Report 6306230-6 (Version None)
Quarter: 2009Q3

REPORT INFORMATION
  Report Type: 
  Country: None (occurrence: None)
  Receive Date: 20090812
  Receipt Date: 20090804
  Transmission Date: 20100115
  Serious: Yes (Death, Hospitalization, Other)
  Sender: FDA-Public Use
  Company Number: US-NOVOPROD-287723

PATIENT
  Sex: Male
  Weight: 8.9 kg

DRUGS (13)
  1. NORDITROPIN NORDIFLEX [Suspect]
     Indication: HYPOPITUITARISM
     Dosage: .25 MG, QD
     Route: 058
     Dates: start: 20071102, end: 20090113
  2. RANITIDINE HCL [Concomitant]
     Indication: DRUG USE FOR UNKNOWN INDICATION
     Dosage: 1.3 ML, BID
     Route: 048
     Dates: start: 20090106
  3. NYSTATIN [Concomitant]
     Indication: DRUG USE FOR UNKNOWN INDICATION
     Dosage: APPLY TO DIAPER AREA, TID
     Route: 061
     Dates: start: 20081218
  4. PREVACID [Concomitant]
     Indication: DRUG USE FOR UNKNOWN INDICATION
     Dosage: .5 TAB PER JEJUNOSTOMY TUBE, QD
     Route: 048
     Dates: start: 20081103
  5. CORTEF                             /00028601/ [Concomitant]
     Indication: DRUG USE FOR UNKNOWN INDICATION
     Dosage: .5 TAB, BID
     Route: 048
     Dates: start: 20081027
  6. ROBINUL [Concomitant]
     Indication: DRUG USE FOR UNKNOWN INDICATION
     Dosage: 1 ML INJECTION VIA G TUBE, TID
     Route: 042
     Dates: start: 20080929
  7. FLOVENT [Concomitant]
     Indication: DRUG USE FOR UNKNOWN INDICATION
     Dosage: 2 PUFF, BID
     Route: 055
     Dates: start: 20080924
  8. ALBUTEROL [Concomitant]
     Indication: DRUG USE FOR UNKNOWN INDICATION
     Dosage: 2 PUFF, EVERY 4-6 HOURS PRN
     Route: 055
     Dates: start: 20080924
  9. TOPAMAX [Concomitant]
     Indication: DRUG USE FOR UNKNOWN INDICATION
     Dosage: 1 TAB, BID VIA GASTRIC BUTTON
     Route: 050
     Dates: start: 20080918, end: 20080918
  10. LEVOXYL [Concomitant]
     Indication: DRUG USE FOR UNKNOWN INDICATION
     Dosage: 1 TAB, QD
     Route: 048
     Dates: start: 20080627
  11. VITAMIN B6 [Concomitant]
     Indication: DRUG USE FOR UNKNOWN INDICATION
     Dosage: 1 TAB, QD VIA G TUBE
     Route: 042
     Dates: start: 20080606
  12. BACLOFEN [Concomitant]
     Indication: DRUG USE FOR UNKNOWN INDICATION
     Dosage: 1 MG, BID VIA GASTRIC TUBE
     Route: 042
     Dates: start: 20080123
  13. MULTIVITAMINES WITH IRON           /02170101/ [Concomitant]
     Indication: DRUG USE FOR UNKNOWN INDICATION
     Dosage: .5 ML, QD
     Route: 048
     Dates: start: 20080102

REACTIONS (7)
  - CONDITION AGGRAVATED [None]
  - CONGENITAL CENTRAL NERVOUS SYSTEM ANOMALY [None]
  - CONVULSION [None]
  - FAILURE TO THRIVE [None]
  - MICROCEPHALY [None]
  - RESPIRATORY DISTRESS [None]
  - SEPSIS [None]
